FAERS Safety Report 9252821 (Version 1)
Quarter: 2013Q2

REPORT INFORMATION
  Report Type: Spontaneous
  Country: US (occurrence: US)
  Receive Date: 20130424
  Receipt Date: 20130424
  Transmission Date: 20140414
  Serious: No
  Sender: FDA-Public Use
  Company Number: US-BAYER-2013-051940

PATIENT
  Sex: Female

DRUGS (1)
  1. STIVARGA [Suspect]

REACTIONS (2)
  - Chromaturia [Recovering/Resolving]
  - Burning sensation [Unknown]
